FAERS Safety Report 10302437 (Version 1)
Quarter: 2014Q3

REPORT INFORMATION
  Report Type: Spontaneous
  Country: US (occurrence: US)
  Receive Date: 20140714
  Receipt Date: 20140714
  Transmission Date: 20150326
  Serious: Yes (Other)
  Sender: FDA-Public Use
  Company Number: US-009507513-1407USA006102

PATIENT
  Sex: Female

DRUGS (1)
  1. BAIN DE SOLEIL SUNSCREEN SPRAY TRANSPARE SPF 4 [Suspect]
     Active Substance: HOMOSALATE\OXYBENZONE
     Indication: PRODUCT USED FOR UNKNOWN INDICATION
     Dosage: UNK, UNKNOWN
     Route: 061

REACTIONS (1)
  - Neoplasm malignant [Not Recovered/Not Resolved]
